FAERS Safety Report 8895999 (Version 1)
Quarter: 2012Q4

REPORT INFORMATION
  Report Type: 
  Country: RU (occurrence: RU)
  Receive Date: 20121108
  Receipt Date: 20121108
  Transmission Date: 20130627
  Serious: Yes (Hospitalization, Other)
  Sender: FDA-Public Use
  Company Number: RU-009507513-1211RUS002390

PATIENT
  Sex: Female

DRUGS (1)
  1. CLARITINE [Suspect]
     Route: 048

REACTIONS (3)
  - Asphyxia [Recovered/Resolved]
  - Oedema [Recovered/Resolved]
  - Rash [Recovered/Resolved]
